FAERS Safety Report 16586353 (Version 1)
Quarter: 2019Q3

REPORT INFORMATION
  Report Type: Spontaneous
  Country: AR (occurrence: AR)
  Receive Date: 20190717
  Receipt Date: 20190717
  Transmission Date: 20191004
  Serious: Yes (Other)
  Sender: FDA-Public Use
  Company Number: AR-PFIZER INC-2019302605

PATIENT
  Age: 77 Year
  Sex: Female

DRUGS (2)
  1. AROMASIN [Suspect]
     Active Substance: EXEMESTANE
     Indication: BREAST CANCER METASTATIC
     Dosage: UNK
     Dates: start: 20190611
  2. AFINITOR [Suspect]
     Active Substance: EVEROLIMUS
     Dosage: UNK

REACTIONS (4)
  - Pyrexia [Unknown]
  - Mucosal disorder [Unknown]
  - Pneumonia [Unknown]
  - Aphonia [Unknown]

NARRATIVE: CASE EVENT DATE: 201907
